FAERS Safety Report 6926417-9 (Version None)
Quarter: 2010Q3

REPORT INFORMATION
  Report Type: 
  Country: None (occurrence: None)
  Receive Date: 20100816
  Receipt Date: 20100803
  Transmission Date: 20110219
  Serious: Yes (Congenital Anomaly)
  Sender: FDA-Public Use
  Company Number: GB-WATSON-2010-10756

PATIENT

DRUGS (4)
  1. CITALOPRAM HYDROBROMIDE [Suspect]
     Indication: ANXIETY
     Dosage: 20 MG, UNKNOWN
     Route: 064
     Dates: start: 20090923
  2. BETAMETHASONE VALERATE [Suspect]
     Indication: DERMATITIS
     Dosage: 100 ML, UNKNOWN
     Route: 064
     Dates: start: 20100415
  3. DIAZEPAM [Suspect]
     Indication: ANXIETY
     Dosage: 5 MG, UNKNOWN
     Route: 064
     Dates: start: 20090827
  4. TRAZODONE HYDROCHLORIDE [Suspect]
     Indication: ANXIETY
     Dosage: 100 MG, UNKNOWN
     Route: 064
     Dates: start: 20090828, end: 20091101

REACTIONS (1)
  - CLEFT PALATE [None]
